FAERS Safety Report 8338846-X (Version None)
Quarter: 2012Q2

REPORT INFORMATION
  Report Type: 
  Country: None (occurrence: None)
  Receive Date: 20120504
  Receipt Date: 20120425
  Transmission Date: 20120825
  Serious: Yes (Hospitalization, Disabling, Other)
  Sender: FDA-Public Use
  Company Number: US-MERCK-1203USA03355

PATIENT
  Age: 60 Year
  Sex: Female
  Weight: 72 kg

DRUGS (7)
  1. FOSAMAX [Suspect]
     Indication: OSTEOPENIA
     Route: 048
     Dates: start: 19990801, end: 20091001
  2. PREMARIN [Concomitant]
     Indication: POSTMENOPAUSE
     Route: 048
     Dates: start: 19880101, end: 20050101
  3. FOSAMAX [Suspect]
     Indication: BONE DENSITY DECREASED
     Route: 048
     Dates: start: 19990801, end: 20091001
  4. COZAAR [Concomitant]
     Route: 048
  5. FOSAMAX [Suspect]
     Route: 048
     Dates: start: 20080201, end: 20110701
  6. FOSAMAX [Suspect]
     Route: 048
     Dates: start: 20080201, end: 20110701
  7. HYDROCHLOROTHIAZIDE [Concomitant]
     Route: 048

REACTIONS (29)
  - FEMUR FRACTURE [None]
  - GASTROOESOPHAGEAL REFLUX DISEASE [None]
  - DIABETES MELLITUS [None]
  - LOW TURNOVER OSTEOPATHY [None]
  - STRESS FRACTURE [None]
  - ROAD TRAFFIC ACCIDENT [None]
  - LIMB INJURY [None]
  - SKIN LESION [None]
  - CHRONIC OBSTRUCTIVE PULMONARY DISEASE [None]
  - HEAD INJURY [None]
  - ASTHMA [None]
  - ARTHROPATHY [None]
  - CONTUSION [None]
  - HIP FRACTURE [None]
  - CALCULUS URETERIC [None]
  - NODULE [None]
  - NAUSEA [None]
  - COUGH [None]
  - DIZZINESS [None]
  - FALL [None]
  - CEREBRAL SMALL VESSEL ISCHAEMIC DISEASE [None]
  - NASOPHARYNGITIS [None]
  - GALLBLADDER DISORDER [None]
  - OSTEOPOROSIS [None]
  - SKIN PAPILLOMA [None]
  - DIARRHOEA [None]
  - CATARACT [None]
  - INFECTED DERMAL CYST [None]
  - UPPER RESPIRATORY TRACT INFECTION [None]
